FAERS Safety Report 4554553-3 (Version None)
Quarter: 2005Q1

REPORT INFORMATION
  Report Type: 
  Country: None (occurrence: None)
  Receive Date: 20050118
  Receipt Date: 20041222
  Transmission Date: 20050727
  Serious: Yes (Life-Threatening, Other)
  Sender: FDA-Public Use
  Company Number: FR-ABBOTT-04P-056-0284716-00

PATIENT
  Sex: Male
  Weight: 2.8 kg

DRUGS (12)
  1. FERO GRAD [Suspect]
     Indication: DRUG EXPOSURE DURING PREGNANCY
  2. IODINE [Suspect]
     Indication: DRUG EXPOSURE DURING PREGNANCY
     Dates: start: 20040528
  3. MAGNESIUM PIDOLATE [Suspect]
     Indication: DRUG EXPOSURE DURING PREGNANCY
  4. L-THYROXINE [Suspect]
     Indication: DRUG EXPOSURE DURING PREGNANCY
  5. TRAMADOL HCL [Suspect]
     Indication: DRUG EXPOSURE DURING PREGNANCY
     Dates: end: 20041028
  6. ACETYLSALICYLIC ACID SRT [Suspect]
     Indication: DRUG EXPOSURE DURING PREGNANCY
  7. ADVITYL [Concomitant]
     Indication: DRUG EXPOSURE DURING PREGNANCY
  8. COLECALCIFEROL [Concomitant]
     Indication: DRUG EXPOSURE DURING PREGNANCY
  9. GAVISCON [Concomitant]
     Indication: DRUG EXPOSURE DURING PREGNANCY
  10. PHLEBODRIL CAPSULE [Concomitant]
     Indication: DRUG EXPOSURE DURING PREGNANCY
  11. SPASFON [Concomitant]
     Indication: DRUG EXPOSURE DURING PREGNANCY
     Dosage: GIVEN AT THE END OF PREGNANCY
  12. ACETYLSALICYLIC ACID SRT [Concomitant]

REACTIONS (4)
  - ARRHYTHMIA NEONATAL [None]
  - DRUG EXPOSURE DURING PREGNANCY [None]
  - FOETAL CARDIAC DISORDER [None]
  - VENTRICULAR SEPTAL DEFECT [None]
